FAERS Safety Report 6173621-6 (Version None)
Quarter: 2009Q2

REPORT INFORMATION
  Report Type: 
  Country: None (occurrence: None)
  Receive Date: 20090430
  Receipt Date: 20090421
  Transmission Date: 20091009
  Serious: Yes (Other)
  Sender: FDA-Public Use
  Company Number: SE-WATSON-2009-02897

PATIENT
  Age: 63 Year
  Sex: Female

DRUGS (3)
  1. TETRACYCLINE HYDROCHLORIDE (WATSON LABORATORIES) [Suspect]
     Indication: ECZEMA
     Dosage: UNK X 2 WEEKS
     Route: 048
     Dates: start: 19940101, end: 19940101
  2. TAMOXIFEN CITRATE [Concomitant]
     Indication: UTERINE CANCER
     Dosage: UNK
  3. HYDROCHLOROTHIAZIDE [Concomitant]
     Indication: DRUG USE FOR UNKNOWN INDICATION
     Dosage: UNK

REACTIONS (4)
  - CHOLESTASIS [None]
  - HEPATOCELLULAR INJURY [None]
  - PRURITUS [None]
  - VANISHING BILE DUCT SYNDROME [None]
